FAERS Safety Report 8543961 (Version 3)
Quarter: 2012Q4

REPORT INFORMATION
  Report Type: Report from Study
  Country: HU (occurrence: HU)
  Receive Date: 20120503
  Receipt Date: 20121008
  Transmission Date: 20130627
  Serious: Yes (Hospitalization)
  Sender: FDA-Public Use
  Company Number: HU-AMGEN-HUNCT2012026664

PATIENT
  Age: 15 Year
  Sex: Male
  Weight: 66.8 kg

DRUGS (3)
  1. ETANERCEPT [Suspect]
     Indication: JUVENILE ARTHRITIS
     Dosage: 50 mg, weekly
     Route: 058
     Dates: start: 20120123
  2. TREXAN                             /00113801/ [Concomitant]
     Indication: JUVENILE ARTHRITIS
     Dosage: 20 mg, weekly
     Route: 048
     Dates: start: 20091127
  3. FOLIC ACID [Concomitant]
     Indication: JUVENILE ARTHRITIS
     Dosage: 3 mg, 2x/week
     Route: 048
     Dates: start: 20091127

REACTIONS (2)
  - Depression [Not Recovered/Not Resolved]
  - Attention deficit/hyperactivity disorder [Not Recovered/Not Resolved]
